FAERS Safety Report 23268374 (Version 3)
Quarter: 2024Q1

REPORT INFORMATION
  Report Type: Spontaneous
  Country: US (occurrence: US)
  Receive Date: 20231206
  Receipt Date: 20240223
  Transmission Date: 20240409
  Serious: Yes (Other)
  Sender: FDA-Public Use
  Company Number: US-PFIZER INC-PV202300197862

PATIENT
  Age: 72 Year
  Sex: Male

DRUGS (3)
  1. BRAFTOVI [Suspect]
     Active Substance: ENCORAFENIB
     Indication: Metastatic malignant melanoma
     Dosage: 75 MG CAP TAKE 450 MG BY MOUTH DAILY
     Route: 048
     Dates: start: 202105
  2. MEKTOVI [Suspect]
     Active Substance: BINIMETINIB
     Indication: Metastatic malignant melanoma
     Dosage: 45 MG, 2X/DAY
     Route: 048
     Dates: start: 202105
  3. BINIMETINIB [Concomitant]
     Active Substance: BINIMETINIB
     Dosage: 15 MG TAB TAKE 45 MG (3 CAPS) BY MOUTH TWICE A DAY
     Route: 048

REACTIONS (4)
  - Adrenal insufficiency [Unknown]
  - Hypothyroidism [Unknown]
  - Hypophysitis [Unknown]
  - Neoplasm progression [Unknown]

NARRATIVE: CASE EVENT DATE: 20220301
